FAERS Safety Report 4903069-0 (Version None)
Quarter: 2006Q1

REPORT INFORMATION
  Report Type: 
  Country: None (occurrence: None)
  Receive Date: 20060207
  Receipt Date: 20060130
  Transmission Date: 20060701
  Serious: Yes (Hospitalization)
  Sender: FDA-Public Use
  Company Number: US-JNJFOC-20060106191

PATIENT
  Sex: Male

DRUGS (2)
  1. REMICADE [Suspect]
     Indication: PSORIASIS
  2. REMICADE [Suspect]
     Indication: PSORIATIC ARTHROPATHY

REACTIONS (2)
  - PNEUMONIA [None]
  - TUBERCULOSIS [None]
